FAERS Safety Report 19404019 (Version 1)
Quarter: 2021Q2

REPORT INFORMATION
  Report Type: Spontaneous
  Country: US (occurrence: US)
  Receive Date: 20210610
  Receipt Date: 20210610
  Transmission Date: 20210717
  Serious: No
  Sender: FDA-Public Use
  Company Number: None

PATIENT
  Age: 79 Year
  Sex: Male
  Weight: 89.81 kg

DRUGS (9)
  1. AMLODIPINE [Suspect]
     Active Substance: AMLODIPINE BESYLATE
  2. SODIUM BICARB [Suspect]
     Active Substance: SODIUM BICARBONATE
  3. SIMVASTATIN. [Suspect]
     Active Substance: SIMVASTATIN
  4. ONDANSETRON [Suspect]
     Active Substance: ONDANSETRON
  5. INLYTA [Suspect]
     Active Substance: AXITINIB
     Indication: RENAL CANCER
     Dosage: ?          OTHER DOSE:1 TAB;?
     Route: 048
     Dates: start: 20210602
  6. LOSARTAN. [Suspect]
     Active Substance: LOSARTAN
  7. ATENOLOL. [Suspect]
     Active Substance: ATENOLOL
  8. FAMOTIDINE. [Suspect]
     Active Substance: FAMOTIDINE
  9. TERAZOSIN [Suspect]
     Active Substance: TERAZOSIN HYDROCHLORIDE

REACTIONS (3)
  - Disease progression [None]
  - Drug ineffective [None]
  - Hospice care [None]
